FAERS Safety Report 5611017-3 (Version None)
Quarter: 2008Q1

REPORT INFORMATION
  Report Type: 
  Country: None (occurrence: None)
  Receive Date: 20080201
  Receipt Date: 20080125
  Transmission Date: 20080703
  Serious: Yes (Other)
  Sender: FDA-Public Use
  Company Number: B0500995A

PATIENT
  Age: 7 Year
  Sex: Female
  Weight: 25 kg

DRUGS (8)
  1. RELENZA [Suspect]
     Indication: INFLUENZA
     Dosage: 10MG TWICE PER DAY
     Route: 055
     Dates: start: 20071211, end: 20071212
  2. SINGULAIR [Concomitant]
     Indication: ASTHMA
     Dosage: 5MG PER DAY
     Route: 048
     Dates: start: 20071114
  3. HOKUNALIN [Concomitant]
     Indication: ASTHMA
     Dosage: 1MG PER DAY
     Route: 062
     Dates: start: 20071114, end: 20071225
  4. FLUTIDE [Concomitant]
     Indication: ASTHMA
     Dosage: 100MCG TWICE PER DAY
     Route: 055
     Dates: start: 20071114
  5. MUCODYNE [Concomitant]
     Indication: BRONCHITIS
     Dosage: 500MG PER DAY
     Route: 048
     Dates: start: 20071211, end: 20071217
  6. MUCOSOLVAN [Concomitant]
     Indication: BRONCHITIS
     Route: 048
     Dates: start: 20071211, end: 20071217
  7. ZITHROMAX [Concomitant]
     Indication: BRONCHITIS
     Dosage: 250MG PER DAY
     Route: 048
     Dates: start: 20071211, end: 20071213
  8. ASVERIN [Concomitant]
     Indication: BRONCHITIS
     Route: 048
     Dates: start: 20071211, end: 20071217

REACTIONS (5)
  - ABNORMAL BEHAVIOUR [None]
  - AGITATION [None]
  - CRYING [None]
  - HALLUCINATION [None]
  - PYREXIA [None]
